FAERS Safety Report 17306561 (Version 3)
Quarter: 2020Q1

REPORT INFORMATION
  Report Type: Spontaneous
  Country: US (occurrence: US)
  Receive Date: 20200123
  Receipt Date: 20200311
  Transmission Date: 20200409
  Serious: No
  Sender: FDA-Public Use
  Company Number: US-UNITED THERAPEUTICS-UNT-2020-000984

PATIENT
  Age: 65 Year
  Sex: Female
  Weight: 92.63 kg

DRUGS (4)
  1. LETAIRIS [Concomitant]
     Active Substance: AMBRISENTAN
     Indication: PRODUCT USED FOR UNKNOWN INDICATION
     Dosage: UNK
     Route: 065
  2. REMODULIN [Suspect]
     Active Substance: TREPROSTINIL
     Indication: PULMONARY ARTERIAL HYPERTENSION
     Dosage: 0.04925 ?G/KG, CONTINUING
     Route: 058
     Dates: start: 20190924
  3. REMODULIN [Suspect]
     Active Substance: TREPROSTINIL
     Dosage: UNK, (INCREASE DOSE)
     Route: 058
     Dates: start: 20200115
  4. REMODULIN [Suspect]
     Active Substance: TREPROSTINIL
     Dosage: 0.06125 ?G/KG, CONTINUING
     Route: 058

REACTIONS (6)
  - Dyspepsia [Unknown]
  - Insomnia [Unknown]
  - Diarrhoea [Unknown]
  - Abdominal pain upper [Unknown]
  - Flatulence [Unknown]
  - Back pain [Unknown]

NARRATIVE: CASE EVENT DATE: 202001
